FAERS Safety Report 7238052-6 (Version None)
Quarter: 2011Q1

REPORT INFORMATION
  Report Type: 
  Country: None (occurrence: None)
  Receive Date: 20110121
  Receipt Date: 20110114
  Transmission Date: 20110831
  Serious: Yes (Death, Hospitalization)
  Sender: FDA-Public Use
  Company Number: B0629900A

PATIENT
  Age: 21 Year
  Sex: Male

DRUGS (10)
  1. ADVAIR [Suspect]
     Indication: ASTHMA
     Dosage: 1PUFF TWICE PER DAY
     Route: 055
     Dates: start: 20050201, end: 20090101
  2. VENTOLIN [Concomitant]
  3. AZMACORT [Concomitant]
  4. MAXAIR [Concomitant]
  5. SINGULAIR [Concomitant]
  6. PULMICORT [Concomitant]
  7. FLONASE [Concomitant]
  8. PROAIR HFA [Concomitant]
  9. ALBUTEROL [Concomitant]
  10. SEREVENT [Suspect]

REACTIONS (2)
  - ACUTE RESPIRATORY FAILURE [None]
  - ASTHMA [None]
